FAERS Safety Report 6309831-4 (Version None)
Quarter: 2009Q3

REPORT INFORMATION
  Report Type: 
  Country: None (occurrence: None)
  Receive Date: 20090814
  Receipt Date: 20090810
  Transmission Date: 20100115
  Serious: Yes (Other)
  Sender: FDA-Public Use
  Company Number: US-PFIZER INC-2005055117

PATIENT
  Sex: Female

DRUGS (11)
  1. PROVERA [Suspect]
     Indication: HORMONE REPLACEMENT THERAPY
     Route: 048
     Dates: start: 19800101, end: 19900101
  2. PROVERA [Suspect]
     Route: 048
     Dates: start: 19990101, end: 20010101
  3. PREMARIN [Suspect]
     Indication: HORMONE REPLACEMENT THERAPY
     Route: 065
     Dates: start: 19800101, end: 19900101
  4. PREMARIN [Suspect]
     Route: 065
     Dates: start: 19990101, end: 20010101
  5. PREMPRO [Suspect]
     Indication: HORMONE REPLACEMENT THERAPY
     Route: 065
     Dates: start: 19800101, end: 19900101
  6. PREMPRO [Suspect]
     Route: 065
     Dates: start: 19990101, end: 20010101
  7. FEMHRT [Suspect]
     Indication: HORMONE REPLACEMENT THERAPY
     Route: 065
     Dates: start: 19800101, end: 19900101
  8. FEMHRT [Suspect]
     Route: 065
     Dates: start: 19990101, end: 20010101
  9. ESTRACE [Suspect]
     Indication: HORMONE REPLACEMENT THERAPY
     Route: 065
     Dates: start: 19800101, end: 19900101
  10. ESTRACE [Suspect]
     Route: 065
     Dates: start: 19990101, end: 20010101
  11. BISOPROLOL FUMARATE AND HYDROCHLOROTHIAZIDE [Concomitant]
     Indication: CEREBROVASCULAR ACCIDENT
     Dosage: UNK
     Dates: start: 20020101

REACTIONS (2)
  - BREAST CANCER FEMALE [None]
  - CEREBROVASCULAR ACCIDENT [None]
